FAERS Safety Report 4767143-4 (Version None)
Quarter: 2005Q3

REPORT INFORMATION
  Report Type: 
  Country: None (occurrence: None)
  Receive Date: 20050906
  Receipt Date: 20050628
  Transmission Date: 20060218
  Serious: No
  Sender: FDA-Public Use
  Company Number: 2005-BP-10934BP

PATIENT
  Age: 48 Year
  Sex: Female

DRUGS (18)
  1. SPIRIVA [Suspect]
     Dosage: 18 MCG (18 MCG, QD) IH
     Route: 055
     Dates: start: 20050527, end: 20050601
  2. ALBUTEROL [Concomitant]
  3. SINGULAIR [Concomitant]
  4. PREVACID [Concomitant]
  5. VITAMIN (VITAMINS) [Concomitant]
  6. SKELAXIN [Concomitant]
  7. WATERPILL (AQUA-BAN) [Concomitant]
  8. TRICOR [Concomitant]
  9. ZOLOFT [Concomitant]
  10. AVANDIA (ROSIGLITAZONE HYDROCHLORIDE) [Concomitant]
  11. GLUCOTROL [Concomitant]
  12. QUININE SULFATE [Concomitant]
  13. AVAPRO [Concomitant]
  14. LANTUS [Concomitant]
  15. QUESTRAN [Concomitant]
  16. THEOPHYLLINE [Concomitant]
  17. MECLIZINE [Concomitant]
  18. INSULIN [Concomitant]

REACTIONS (2)
  - PRURITUS [None]
  - URTICARIA [None]
